FAERS Safety Report 22398315 (Version 1)
Quarter: 2023Q2

REPORT INFORMATION
  Report Type: Spontaneous
  Country: US (occurrence: US)
  Receive Date: 20230602
  Receipt Date: 20230602
  Transmission Date: 20230722
  Serious: Yes (Hospitalization)
  Sender: FDA-Public Use
  Company Number: US-ROCHE-2980762

PATIENT
  Age: 68 Year
  Sex: Male

DRUGS (20)
  1. CAPECITABINE [Suspect]
     Active Substance: CAPECITABINE
     Indication: Oesophageal carcinoma
     Dosage: 3 TABLETS BY MOUTH TWICE A DAY FOR 14 DAYS.
     Route: 048
  2. CAPECITABINE [Suspect]
     Active Substance: CAPECITABINE
     Indication: Gastric cancer
     Dosage: 3 TABLETS BY MOUTH TWICE A DAY FOR 14 DAYS.
     Route: 048
  3. CAPECITABINE [Suspect]
     Active Substance: CAPECITABINE
     Indication: Oesophageal carcinoma
     Dosage: TAKE 3 TABLET(S) BY MOUTH (1500MG) TWICE A DAY 2 WEEK(S) ON, 1 WEEK (S) OFF (TAKE?WITH GLASS OF ...
     Route: 048
  4. CAPECITABINE [Suspect]
     Active Substance: CAPECITABINE
     Indication: Gastric cancer
     Dosage: TAKE 3 TABLET(S) BY MOUTH (1500MG) TWICE A DAY 2 WEEK(S) ON, 1 WEEK (S) OFF (TAKE?WITH GLASS OF ...
     Route: 048
  5. CAPECITABINE [Suspect]
     Active Substance: CAPECITABINE
     Indication: Oesophageal carcinoma
     Dosage: OFF 7 DAYS, OF A 21 DAY CYCLE WITH GLASS OF WATER
     Route: 048
  6. CAPECITABINE [Suspect]
     Active Substance: CAPECITABINE
     Indication: Gastric cancer
     Dosage: OFF 7 DAYS, OF A 21 DAY CYCLE WITH GLASS OF WATER
     Route: 048
  7. ACETAMINOPHEN [Concomitant]
     Active Substance: ACETAMINOPHEN
     Route: 048
  8. ALBUTEROL SULFATE [Concomitant]
     Active Substance: ALBUTEROL SULFATE
     Route: 045
  9. ATORVASTATIN [Concomitant]
     Active Substance: ATORVASTATIN
     Route: 048
  10. BECLOMETHASONE DIPROPIONATE [Concomitant]
     Active Substance: BECLOMETHASONE DIPROPIONATE
  11. FLUTICASONE PROPIONATE [Concomitant]
     Active Substance: FLUTICASONE PROPIONATE
     Route: 045
  12. GABAPENTIN [Concomitant]
     Active Substance: GABAPENTIN
     Route: 048
  13. IBUPROFEN [Concomitant]
     Active Substance: IBUPROFEN
  14. LISINOPRIL [Concomitant]
     Active Substance: LISINOPRIL
     Route: 048
  15. LOPERAMIDE [Concomitant]
     Active Substance: LOPERAMIDE
     Dosage: 4 MG BY MOUTH ONCE AND 2 MG VERY TWO HOURS UNTIL THE DIARRHEA GETS RESOLVED
  16. ONDANSETRON [Concomitant]
     Active Substance: ONDANSETRON
     Route: 048
  17. PROCHLORPERAZINE [Concomitant]
     Active Substance: PROCHLORPERAZINE
     Dosage: 10 MG EVERY 6 HOURLY FOR CHEMO INDUCED NAUSEA
     Route: 048
  18. STIOLTO RESPIMAT [Concomitant]
     Active Substance: OLODATEROL HYDROCHLORIDE\TIOTROPIUM BROMIDE MONOHYDRATE
     Dosage: 2 PUFFS IN LUNGS DAILY
     Route: 055
  19. CARMOL 20 [Concomitant]
     Route: 061
  20. VITAMIN B COMPLEX [Concomitant]
     Active Substance: CYANOCOBALAMIN\DEXPANTHENOL\NIACINAMIDE\PYRIDOXINE HYDROCHLORIDE\RIBOFLAVIN 5^-PHOSPHATE SODIUM\THIA
     Route: 048

REACTIONS (3)
  - Chronic obstructive pulmonary disease [Unknown]
  - Product use in unapproved indication [Unknown]
  - Product dose omission issue [Unknown]
